FAERS Safety Report 5176486-4 (Version None)
Quarter: 2006Q4

REPORT INFORMATION
  Report Type: 
  Country: None (occurrence: None)
  Receive Date: 20061215
  Receipt Date: 20061201
  Transmission Date: 20070319
  Serious: Yes (Death)
  Sender: FDA-Public Use
  Company Number: NL-SANOFI-SYNTHELABO-F01200602504

PATIENT
  Sex: Male

DRUGS (9)
  1. ZOPICLONE [Concomitant]
  2. OXAZEPAM [Concomitant]
  3. ACETAMINOPHEN [Concomitant]
  4. AMARYL [Concomitant]
  5. METFORMIN HCL [Concomitant]
  6. BEVACIZUMAB [Suspect]
     Route: 041
     Dates: start: 20060713, end: 20060713
  7. CAPECITABINE [Suspect]
     Dosage: DAYS 1-14 (1250 MG/M2 AFTER CYCLE 6) 1800 MG
     Route: 048
     Dates: start: 20060713
  8. OXALIPLATIN [Suspect]
     Indication: COLORECTAL CANCER
     Route: 041
     Dates: start: 20060713, end: 20060713
  9. CETUXIMAB [Suspect]
     Dosage: 400 MG/M2 DAY 1 OF CYCLE 1, THEREAFTER 250 MG/M2 WEEKLY
     Route: 041
     Dates: start: 20060727, end: 20060727

REACTIONS (1)
  - THROMBOTIC THROMBOCYTOPENIC PURPURA [None]
